FAERS Safety Report 5676750-6 (Version None)
Quarter: 2008Q1

REPORT INFORMATION
  Report Type: 
  Country: None (occurrence: None)
  Receive Date: 20080318
  Receipt Date: 20080312
  Transmission Date: 20080703
  Serious: Yes (Death)
  Sender: FDA-Public Use
  Company Number: TCI2008A00114

PATIENT
  Age: 76 Year
  Sex: Female

DRUGS (4)
  1. TAKEPRON OD TABLETS 30    (LANSOPRAZOLE) [Suspect]
     Indication: GASTRIC ULCER
     Dosage: 30 MG (30 MG,1 IN 1 D)
     Route: 048
     Dates: start: 20071122, end: 20071225
  2. FOSAMAX [Suspect]
     Indication: OSTEOPOROSIS
     Dosage: 35 MG (35 MG,1 IN 1 WK)
     Route: 048
     Dates: start: 20071210, end: 20071225
  3. PREDNISOLONE [Concomitant]
  4. MAGNESIUM OXIDE (PREPARATION FOR ORAL USE (NOS)) [Concomitant]

REACTIONS (12)
  - AGRANULOCYTOSIS [None]
  - ALTERED STATE OF CONSCIOUSNESS [None]
  - ANTINUCLEAR ANTIBODY POSITIVE [None]
  - BLOOD PRESSURE DECREASED [None]
  - DISSEMINATED INTRAVASCULAR COAGULATION [None]
  - FAECAL INCONTINENCE [None]
  - HEPATIC NECROSIS [None]
  - HEPATITIS ACUTE [None]
  - MALAISE [None]
  - SEPTIC SHOCK [None]
  - STAPHYLOCOCCAL INFECTION [None]
  - URINARY INCONTINENCE [None]
